FAERS Safety Report 8002032-3 (Version None)
Quarter: 2011Q4

REPORT INFORMATION
  Report Type: 
  Country: None (occurrence: None)
  Receive Date: 20111222
  Receipt Date: 20111219
  Transmission Date: 20120403
  Serious: Yes (Other)
  Sender: FDA-Public Use
  Company Number: US-BRISTOL-MYERS SQUIBB COMPANY-16225096

PATIENT
  Age: 60 Year
  Sex: Female

DRUGS (9)
  1. COUMADIN [Suspect]
     Indication: ATRIAL FIBRILLATION
     Route: 048
     Dates: start: 20111002
  2. LEVOTHYROXINE SODIUM [Concomitant]
  3. HYDROCHLOROTHIAZIDE [Concomitant]
  4. NEVANAC [Concomitant]
  5. TRAVATAN [Concomitant]
  6. COSOPT [Concomitant]
  7. LEXAPRO [Concomitant]
  8. LIVALO [Concomitant]
  9. DIAMOX SRC [Concomitant]

REACTIONS (1)
  - INTRAOCULAR PRESSURE INCREASED [None]
